FAERS Safety Report 18102936 (Version 1)
Quarter: 2020Q3

REPORT INFORMATION
  Report Type: Spontaneous
  Country: US (occurrence: US)
  Receive Date: 20200731
  Receipt Date: 20200731
  Transmission Date: 20201103
  Serious: Yes (Death)
  Sender: FDA-Public Use
  Company Number: None

PATIENT
  Age: 86 Year
  Sex: Female

DRUGS (1)
  1. JADENU [Suspect]
     Active Substance: DEFERASIROX
     Dosage: ?          OTHER DOSE:JADENU 720 MG;?
     Route: 048
     Dates: start: 20200324, end: 202007

REACTIONS (1)
  - Death [None]

NARRATIVE: CASE EVENT DATE: 202007
